FAERS Safety Report 5832183-0 (Version None)
Quarter: 2008Q3

REPORT INFORMATION
  Report Type: 
  Country: None (occurrence: None)
  Receive Date: 20080804
  Receipt Date: 20080728
  Transmission Date: 20090109
  Serious: Yes (Death)
  Sender: FDA-Public Use
  Company Number: KR-AVENTIS-200817202GDDC

PATIENT
  Sex: Female

DRUGS (1)
  1. TAXOTERE [Suspect]
     Indication: OVARIAN CANCER RECURRENT
     Dosage: DOSE: UNK
     Route: 042
     Dates: start: 20080724, end: 20080724

REACTIONS (1)
  - CARDIAC ARREST [None]
